FAERS Safety Report 4501705-4 (Version None)
Quarter: 2004Q4

REPORT INFORMATION
  Report Type: 
  Country: None (occurrence: None)
  Receive Date: 20041115
  Receipt Date: 20041115
  Transmission Date: 20050328
  Serious: Yes (Life-Threatening, Hospitalization)
  Sender: FDA-Public Use
  Company Number: None

PATIENT
  Age: 4 Year
  Sex: Male
  Weight: 21 kg

DRUGS (6)
  1. PEG-ASPARAGINASE [Suspect]
     Indication: ACUTE LYMPHOCYTIC LEUKAEMIA
     Dosage: 2025 MG IM X 1
     Route: 030
     Dates: start: 20041015
  2. DEXAMETHASONE [Concomitant]
  3. VINCRISTINE [Concomitant]
  4. ITARA-C [Concomitant]
  5. METHOTREXATE [Concomitant]
  6. 6MP [Concomitant]

REACTIONS (8)
  - ABNORMAL BEHAVIOUR [None]
  - CONVULSION [None]
  - DECREASED ACTIVITY [None]
  - HEADACHE [None]
  - HEMIPARESIS [None]
  - PHARYNGOLARYNGEAL PAIN [None]
  - SUPERIOR SAGITTAL SINUS THROMBOSIS [None]
  - TREMOR [None]
